FAERS Safety Report 14172201 (Version 1)
Quarter: 2017Q4

REPORT INFORMATION
  Report Type: Spontaneous
  Country: US (occurrence: None)
  Receive Date: 20171108
  Receipt Date: 20171108
  Transmission Date: 20180321
  Serious: No
  Sender: FDA-Public Use
  Company Number: None

PATIENT
  Age: 40 Year
  Sex: Female

DRUGS (1)
  1. STIVARGA [Suspect]
     Active Substance: REGORAFENIB
     Indication: NEOPLASM
     Route: 048
     Dates: start: 20170504

REACTIONS (3)
  - Headache [None]
  - Joint swelling [None]
  - Chest pain [None]

NARRATIVE: CASE EVENT DATE: 20170919
